FAERS Safety Report 5149311-5 (Version None)
Quarter: 2006Q4

REPORT INFORMATION
  Report Type: 
  Country: None (occurrence: None)
  Receive Date: 20061113
  Receipt Date: 20061110
  Transmission Date: 20070319
  Serious: Yes (Life-Threatening, Hospitalization)
  Sender: FDA-Public Use
  Company Number: FR-GLAXOSMITHKLINE-B0446118A

PATIENT
  Age: 24 Year
  Sex: Female

DRUGS (1)
  1. CLAMOXYL [Suspect]
     Dosage: 1G SINGLE DOSE
     Route: 048
     Dates: start: 20060830, end: 20060830

REACTIONS (15)
  - ABDOMINAL PAIN [None]
  - ANAPHYLACTIC SHOCK [None]
  - BURNING SENSATION [None]
  - DERMOGRAPHISM [None]
  - DIARRHOEA [None]
  - DRUG HYPERSENSITIVITY [None]
  - ERYTHEMA [None]
  - FACE OEDEMA [None]
  - HYPOTENSION [None]
  - LOSS OF CONSCIOUSNESS [None]
  - MYOCARDITIS [None]
  - PNEUMOTHORAX [None]
  - PRURITUS [None]
  - URTICARIA CHRONIC [None]
  - VOMITING [None]
